FAERS Safety Report 20712773 (Version 1)
Quarter: 2022Q2

REPORT INFORMATION
  Report Type: Spontaneous
  Country: FR (occurrence: FR)
  Receive Date: 20220415
  Receipt Date: 20220415
  Transmission Date: 20220721
  Serious: Yes (Hospitalization)
  Sender: FDA-Public Use
  Company Number: FR-SA-2018SA228592

PATIENT
  Age: 65 Year
  Sex: Male
  Weight: 71.5 kg

DRUGS (7)
  1. FOLIC ACID [Suspect]
     Active Substance: FOLIC ACID
     Indication: Colorectal cancer metastatic
     Dosage: CYCLICAL
     Route: 042
     Dates: start: 20180514, end: 20180514
  2. IRINOTECAN [Suspect]
     Active Substance: IRINOTECAN
     Indication: Colorectal cancer metastatic
     Dosage: 150 MG/M2,CYCLICAL
     Route: 042
     Dates: start: 20180514, end: 20180514
  3. AFLIBERCEPT [Suspect]
     Active Substance: AFLIBERCEPT
     Indication: Colorectal cancer metastatic
     Dosage: UNK UNK, CYCLICAL
     Route: 042
     Dates: start: 20180514, end: 20180514
  4. AFLIBERCEPT [Suspect]
     Active Substance: AFLIBERCEPT
     Dosage: 4 MG/KG, CYCLICAL
     Route: 042
     Dates: start: 20180529, end: 20180529
  5. FLUOROURACIL [Suspect]
     Active Substance: FLUOROURACIL
     Indication: Colorectal cancer metastatic
     Dosage: 2400 MG/M2, CYCLICAL
     Route: 042
     Dates: start: 20180514, end: 20180514
  6. INNOHEP [Concomitant]
     Active Substance: TINZAPARIN SODIUM
     Indication: Venous thrombosis
     Dosage: 0.7 MILLILITER, ONCE A DAY
     Route: 065
     Dates: start: 20180731
  7. NEBIVOLOL [Concomitant]
     Active Substance: NEBIVOLOL
     Indication: Hypertension
     Dosage: 1 DOSAGE FORM, ONCE A DAY
     Route: 065
     Dates: start: 20180731

REACTIONS (2)
  - Pyrexia [Recovered/Resolved]
  - Oedema peripheral [Recovered/Resolved]

NARRATIVE: CASE EVENT DATE: 20180722
